FAERS Safety Report 23113900 (Version 3)
Quarter: 2023Q4

REPORT INFORMATION
  Report Type: Spontaneous
  Country: JP (occurrence: JP)
  Receive Date: 20231027
  Receipt Date: 20231123
  Transmission Date: 20240110
  Serious: Yes (Death, Life-Threatening, Hospitalization, Other)
  Sender: FDA-Public Use
  Company Number: JP-Accord-386558

PATIENT
  Age: 63 Year
  Sex: Female
  Weight: 42 kg

DRUGS (14)
  1. TACROLIMUS [Suspect]
     Active Substance: TACROLIMUS
     Indication: Dermatomyositis
     Dosage: ON DAY 18 OF ADMISSION
     Route: 048
  2. METHYLPREDNISOLONE [Suspect]
     Active Substance: METHYLPREDNISOLONE
     Indication: Dermatomyositis
     Dosage: PULSE
  3. CYCLOPHOSPHAMIDE [Suspect]
     Active Substance: CYCLOPHOSPHAMIDE
     Indication: Dermatomyositis
     Route: 042
  4. PREDNISOLONE [Concomitant]
     Active Substance: PREDNISOLONE
     Indication: Dermatomyositis
     Dosage: 1 MG/KG
  5. MICAFUNGIN SODIUM [Concomitant]
     Active Substance: MICAFUNGIN SODIUM
     Indication: Bronchopulmonary aspergillosis
  6. MEROPENEM [Concomitant]
     Active Substance: MEROPENEM
     Indication: Febrile neutropenia
  7. METHYLPREDNISOLONE [Suspect]
     Active Substance: METHYLPREDNISOLONE
     Indication: Dermatomyositis
     Dosage: GRADUAL TAPERED DOWN
  8. PREDNISOLONE [Concomitant]
     Active Substance: PREDNISOLONE
     Indication: Dermatomyositis
     Dosage: TAPERED DOWN
  9. PREDNISOLONE [Concomitant]
     Active Substance: PREDNISOLONE
     Indication: Dermatomyositis
     Dosage: TAPERED DOWN
  10. TACROLIMUS [Suspect]
     Active Substance: TACROLIMUS
     Indication: Dermatomyositis
     Dosage: ON DAY 4 OF ADMISSION
     Route: 048
  11. TACROLIMUS [Suspect]
     Active Substance: TACROLIMUS
     Indication: Dermatomyositis
     Dosage: ON DAY 10 OF ADMISSION
     Route: 048
  12. TACROLIMUS [Suspect]
     Active Substance: TACROLIMUS
     Indication: Dermatomyositis
     Dosage: ON DAY 38 OF ADMISSION
     Route: 048
  13. TACROLIMUS [Suspect]
     Active Substance: TACROLIMUS
     Indication: Dermatomyositis
     Dosage: ON DAY 1 OF ADMISSION
     Route: 048
  14. TACROLIMUS [Suspect]
     Active Substance: TACROLIMUS
     Indication: Dermatomyositis
     Dosage: ON DAY 50 OF ADMISSION
     Route: 048

REACTIONS (12)
  - Thrombotic microangiopathy [Fatal]
  - Febrile neutropenia [Unknown]
  - Bronchopulmonary aspergillosis [Unknown]
  - Disseminated intravascular coagulation [Unknown]
  - Pulmonary oedema [Unknown]
  - Haematochezia [Unknown]
  - Immunosuppressant drug level increased [Unknown]
  - Depressed level of consciousness [Unknown]
  - Renal impairment [Unknown]
  - Memory impairment [Unknown]
  - Seizure [Unknown]
  - Depressive symptom [Unknown]
